FAERS Safety Report 4601347-6 (Version None)
Quarter: 2005Q2

REPORT INFORMATION
  Report Type: 
  Country: None (occurrence: None)
  Receive Date: 20050204
  Receipt Date: 20040624
  Transmission Date: 20051028
  Serious: Yes (Other)
  Sender: FDA-Public Use
  Company Number: 800040

PATIENT
  Age: 56 Year
  Sex: Male
  Weight: 83.9154 kg

DRUGS (14)
  1. DIANEAL [Suspect]
     Indication: PERITONEAL DIALYSIS
     Dosage: 6.5 L; QD; INTRAPERITONEAL
     Route: 033
     Dates: start: 20030101
  2. HECTORAL [Concomitant]
  3. SODIUM BICARBONATE [Concomitant]
  4. OMEPRAZOLE [Concomitant]
  5. DIATIX [Concomitant]
  6. VITAMIN E [Concomitant]
  7. VITAMIN C [Concomitant]
  8. RENAGEL [Concomitant]
  9. LIPITOR [Concomitant]
  10. CLONAZEPAM [Concomitant]
  11. FERREX [Concomitant]
  12. AMMONIUM LACTATE [Concomitant]
  13. MICROIM [Concomitant]
  14. DOXINMESYLATE [Concomitant]

REACTIONS (2)
  - PERITONITIS BACTERIAL [None]
  - STAPHYLOCOCCAL INFECTION [None]
